FAERS Safety Report 16149484 (Version 1)
Quarter: 2019Q2

REPORT INFORMATION
  Report Type: Report from Study
  Country: JP (occurrence: JP)
  Receive Date: 20190402
  Receipt Date: 20190402
  Transmission Date: 20190711
  Serious: Yes (Death, Hospitalization)
  Sender: FDA-Public Use
  Company Number: JP-ASTRAZENECA-2018SE10149

PATIENT
  Age: 29147 Day
  Sex: Male

DRUGS (44)
  1. DURVALUMAB. [Suspect]
     Active Substance: DURVALUMAB
     Indication: SMALL CELL LUNG CANCER
     Route: 042
     Dates: start: 20181101, end: 20181101
  2. ETOPOSIDE. [Suspect]
     Active Substance: ETOPOSIDE
     Indication: SMALL CELL LUNG CANCER
     Dosage: 56.0MG/M2 ONCE/SINGLE ADMINISTRATION
     Route: 065
     Dates: start: 20171109, end: 20171109
  3. CARBOPLATIN. [Suspect]
     Active Substance: CARBOPLATIN
     Indication: SMALL CELL LUNG CANCER
     Dosage: 5 AUC ONCE/SINGLE ADMINISTRATION
     Route: 065
     Dates: start: 20170914, end: 20170914
  4. FAMOTIDINE. [Concomitant]
     Active Substance: FAMOTIDINE
     Indication: GASTRITIS PROPHYLAXIS
     Route: 048
  5. ZOLPIDEM TARTRATE. [Concomitant]
     Active Substance: ZOLPIDEM TARTRATE
     Indication: INSOMNIA
     Route: 048
  6. AZUNOL [SODIUM GUALENATE] [Concomitant]
     Active Substance: SODIUM GUALENATE
     Indication: INFECTION PROPHYLAXIS
     Dosage: 4.0% AS REQUIRED
     Route: 002
     Dates: start: 20171003
  7. DURVALUMAB. [Suspect]
     Active Substance: DURVALUMAB
     Indication: SMALL CELL LUNG CANCER
     Route: 042
     Dates: start: 20181004, end: 20181004
  8. DURVALUMAB. [Suspect]
     Active Substance: DURVALUMAB
     Indication: SMALL CELL LUNG CANCER
     Route: 042
     Dates: start: 20181227, end: 20181227
  9. ETOPOSIDE. [Suspect]
     Active Substance: ETOPOSIDE
     Indication: SMALL CELL LUNG CANCER
     Dosage: 80.0MG/M2 ONCE/SINGLE ADMINISTRATION
     Route: 065
     Dates: start: 20170914, end: 20170914
  10. SENNOSIDE [Concomitant]
     Active Substance: SENNOSIDES
     Indication: CONSTIPATION
     Dosage: 12.0MG AS REQUIRED
     Route: 048
  11. MAGMITT [Concomitant]
     Active Substance: MAGNESIUM OXIDE
     Indication: CONSTIPATION
     Dosage: 330.0MG AS REQUIRED
     Route: 048
     Dates: start: 20170919
  12. DURVALUMAB. [Suspect]
     Active Substance: DURVALUMAB
     Indication: SMALL CELL LUNG CANCER
     Route: 042
     Dates: start: 20180809, end: 20180809
  13. DURVALUMAB. [Suspect]
     Active Substance: DURVALUMAB
     Indication: SMALL CELL LUNG CANCER
     Route: 042
     Dates: start: 20180907, end: 20180907
  14. ETOPOSIDE. [Suspect]
     Active Substance: ETOPOSIDE
     Indication: SMALL CELL LUNG CANCER
     Dosage: 73.0MG/M2 ONCE/SINGLE ADMINISTRATION
     Route: 065
     Dates: start: 20171018, end: 20171018
  15. ETOPOSIDE. [Suspect]
     Active Substance: ETOPOSIDE
     Indication: SMALL CELL LUNG CANCER
     Dosage: 56.0MG/M2 ONCE/SINGLE ADMINISTRATION
     Route: 065
     Dates: start: 20171206, end: 20171206
  16. ETOPOSIDE. [Suspect]
     Active Substance: ETOPOSIDE
     Indication: SMALL CELL LUNG CANCER
     Dosage: 56.0MG/M2 ONCE/SINGLE ADMINISTRATION
     Route: 065
     Dates: start: 20171207, end: 20171207
  17. DURVALUMAB. [Suspect]
     Active Substance: DURVALUMAB
     Indication: SMALL CELL LUNG CANCER
     Route: 042
     Dates: start: 20170914, end: 20170914
  18. LOSARTAN POTASSIUM. [Concomitant]
     Active Substance: LOSARTAN POTASSIUM
     Indication: HYPERTENSION
     Route: 048
  19. KETOPROFEN. [Concomitant]
     Active Substance: KETOPROFEN
     Indication: BACK PAIN
     Dosage: AS REQUIRED
     Route: 062
  20. DURVALUMAB. [Suspect]
     Active Substance: DURVALUMAB
     Indication: SMALL CELL LUNG CANCER
     Route: 042
     Dates: start: 20171108, end: 20171108
  21. DURVALUMAB. [Suspect]
     Active Substance: DURVALUMAB
     Indication: SMALL CELL LUNG CANCER
     Route: 042
     Dates: start: 20171205, end: 20171205
  22. DURVALUMAB. [Suspect]
     Active Substance: DURVALUMAB
     Indication: SMALL CELL LUNG CANCER
     Route: 042
     Dates: start: 20180712, end: 20180712
  23. ETOPOSIDE. [Suspect]
     Active Substance: ETOPOSIDE
     Indication: SMALL CELL LUNG CANCER
     Dosage: 80.0MG/M2 ONCE/SINGLE ADMINISTRATION
     Route: 065
     Dates: start: 20170916, end: 20170916
  24. KENALOG [Concomitant]
     Active Substance: TRIAMCINOLONE ACETONIDE
     Indication: STOMATITIS
     Dosage: RESONABLE AMOUNT AS REQUIRED
     Route: 002
     Dates: start: 20180115, end: 20180123
  25. TEPRENONE [Concomitant]
     Active Substance: TEPRENONE
     Indication: GASTRITIS PROPHYLAXIS
     Route: 048
     Dates: start: 20171207
  26. DURVALUMAB. [Suspect]
     Active Substance: DURVALUMAB
     Indication: SMALL CELL LUNG CANCER
     Route: 042
     Dates: start: 20171226, end: 20171226
  27. DURVALUMAB. [Suspect]
     Active Substance: DURVALUMAB
     Indication: SMALL CELL LUNG CANCER
     Route: 042
     Dates: start: 20190124, end: 20190124
  28. ETOPOSIDE. [Suspect]
     Active Substance: ETOPOSIDE
     Indication: SMALL CELL LUNG CANCER
     Dosage: 56.0MG/M2 ONCE/SINGLE ADMINISTRATION
     Route: 065
     Dates: start: 20171110, end: 20171110
  29. CARBOPLATIN. [Suspect]
     Active Substance: CARBOPLATIN
     Indication: SMALL CELL LUNG CANCER
     Dosage: 2.7 AUC ONCE/SINGLE ADMINISTRATION
     Route: 065
     Dates: start: 20171108, end: 20171108
  30. DURVALUMAB. [Suspect]
     Active Substance: DURVALUMAB
     Indication: SMALL CELL LUNG CANCER
     Route: 042
     Dates: start: 20171016, end: 20171016
  31. DURVALUMAB. [Suspect]
     Active Substance: DURVALUMAB
     Indication: SMALL CELL LUNG CANCER
     Route: 042
     Dates: start: 20181129, end: 20181129
  32. ETOPOSIDE. [Suspect]
     Active Substance: ETOPOSIDE
     Indication: SMALL CELL LUNG CANCER
     Dosage: 80.0MG/M2 ONCE/SINGLE ADMINISTRATION
     Route: 065
     Dates: start: 20170915, end: 20170915
  33. ETOPOSIDE. [Suspect]
     Active Substance: ETOPOSIDE
     Indication: SMALL CELL LUNG CANCER
     Dosage: 73.0MG/M2 ONCE/SINGLE ADMINISTRATION
     Route: 065
     Dates: start: 20171016, end: 20171016
  34. ETOPOSIDE. [Suspect]
     Active Substance: ETOPOSIDE
     Indication: SMALL CELL LUNG CANCER
     Dosage: 56.0MG/M2 ONCE/SINGLE ADMINISTRATION
     Route: 065
     Dates: start: 20171108, end: 20171108
  35. SODIUM FERROUS CITRATE [Concomitant]
     Active Substance: SODIUM FERROUS CITRATE
     Indication: ANAEMIA
     Route: 048
     Dates: start: 20171010, end: 20180115
  36. DURVALUMAB. [Suspect]
     Active Substance: DURVALUMAB
     Indication: SMALL CELL LUNG CANCER
     Route: 042
     Dates: start: 20180613, end: 20180613
  37. ETOPOSIDE. [Suspect]
     Active Substance: ETOPOSIDE
     Indication: SMALL CELL LUNG CANCER
     Dosage: 73.0MG/M2 ONCE/SINGLE ADMINISTRATION
     Route: 065
     Dates: start: 20171017, end: 20171017
  38. ETOPOSIDE. [Suspect]
     Active Substance: ETOPOSIDE
     Indication: SMALL CELL LUNG CANCER
     Dosage: 56.0MG/M2 ONCE/SINGLE ADMINISTRATION
     Route: 065
     Dates: start: 20171205, end: 20171205
  39. CARBOPLATIN. [Suspect]
     Active Substance: CARBOPLATIN
     Indication: SMALL CELL LUNG CANCER
     Dosage: 4.3 AUC ONCE/SINGLE ADMINISTRATION
     Route: 065
     Dates: start: 20171016, end: 20171016
  40. CARBOPLATIN. [Suspect]
     Active Substance: CARBOPLATIN
     Indication: SMALL CELL LUNG CANCER
     Dosage: 2.6 AUC ONCE/SINGLE ADMINISTRATION
     Route: 065
     Dates: start: 20171205, end: 20171205
  41. CALBLOCK [Concomitant]
     Active Substance: AZELNIDIPINE
     Indication: HYPERTENSION
     Route: 048
  42. PATANOL [Concomitant]
     Active Substance: OLOPATADINE HYDROCHLORIDE
     Indication: CONJUNCTIVITIS ALLERGIC
     Dosage: 2.0GTT AS REQUIRED
     Route: 047
  43. OXAROL [Concomitant]
     Active Substance: MAXACALCITOL
     Indication: PALMOPLANTAR PUSTULOSIS
     Dosage: RESONABLE AMOUNT AS REQUIRED
     Route: 061
  44. RINDERON-DP [Concomitant]
     Indication: PALMOPLANTAR PUSTULOSIS
     Dosage: RESONABLE AMOUNT AS REQUIRED
     Route: 061

REACTIONS (1)
  - Interstitial lung disease [Fatal]

NARRATIVE: CASE EVENT DATE: 20180116
